FAERS Safety Report 11160580 (Version 1)
Quarter: 2015Q2

REPORT INFORMATION
  Report Type: Spontaneous
  Country: US (occurrence: US)
  Receive Date: 20150604
  Receipt Date: 20150604
  Transmission Date: 20150821
  Serious: No
  Sender: FDA-Public Use
  Company Number: US-SA-2014SA056984

PATIENT
  Age: 80 Year
  Sex: Male

DRUGS (1)
  1. LANTUS [Suspect]
     Active Substance: INSULIN GLARGINE
     Indication: TYPE 2 DIABETES MELLITUS
     Dosage: 25 UNITS AT AM AND 40 UNITS AT PM
     Route: 065
     Dates: start: 201311

REACTIONS (2)
  - Blood glucose fluctuation [Unknown]
  - Drug administration error [Unknown]

NARRATIVE: CASE EVENT DATE: 201403
